FAERS Safety Report 21676145 (Version 1)
Quarter: 2022Q4

REPORT INFORMATION
  Report Type: Report from Study
  Country: US (occurrence: US)
  Receive Date: 20221202
  Receipt Date: 20221202
  Transmission Date: 20230113
  Serious: No
  Sender: FDA-Public Use
  Company Number: US-ABBVIE-4185046

PATIENT
  Sex: Female

DRUGS (3)
  1. HUMIRA [Suspect]
     Active Substance: ADALIMUMAB
     Indication: Rheumatoid arthritis
     Dosage: CITRATE FREE
     Route: 058
  2. PFIZER-BIONTECH COVID-19 VACCINE [Concomitant]
     Active Substance: TOZINAMERAN
     Indication: COVID-19 immunisation
     Dosage: FREQUENCY: ONE IN ONCE
     Route: 030
  3. PFIZER-BIONTECH COVID-19 VACCINE [Concomitant]
     Active Substance: TOZINAMERAN
     Indication: COVID-19 immunisation
     Dosage: FREQUENCY: ONE IN ONCE, BOOSTER DOSE
     Route: 030

REACTIONS (10)
  - Nasopharyngitis [Not Recovered/Not Resolved]
  - Hypertension [Recovering/Resolving]
  - Musculoskeletal stiffness [Recovering/Resolving]
  - Pain [Recovering/Resolving]
  - Asthma [Recovering/Resolving]
  - Thyroid disorder [Recovering/Resolving]
  - Nasal congestion [Not Recovered/Not Resolved]
  - Migraine [Recovering/Resolving]
  - Back disorder [Recovering/Resolving]
  - Pain [Not Recovered/Not Resolved]
